FAERS Safety Report 8615809-8 (Version None)
Quarter: 2012Q3

REPORT INFORMATION
  Report Type: 
  Country: None (occurrence: None)
  Receive Date: 20120823
  Receipt Date: 20120816
  Transmission Date: 20120928
  Serious: Yes (Hospitalization)
  Sender: FDA-Public Use
  Company Number: FR-B.I. PHARMACEUTICALS,INC./RIDGEFIELD-2012-FF-01061FF

PATIENT
  Age: 68 Year
  Sex: Male

DRUGS (3)
  1. PRADAXA [Suspect]
     Dosage: 300 MG
     Route: 048
     Dates: start: 20120803
  2. PREVISCAN [Suspect]
     Dosage: 35 MG
     Route: 048
     Dates: start: 20100901, end: 20120610
  3. PRADAXA [Suspect]
     Dosage: 220 MG
     Route: 048
     Dates: start: 20120725, end: 20120730

REACTIONS (2)
  - REVERSIBLE ISCHAEMIC NEUROLOGICAL DEFICIT [None]
  - ISCHAEMIC STROKE [None]
